FAERS Safety Report 6785880-7 (Version None)
Quarter: 2010Q2

REPORT INFORMATION
  Report Type: 
  Country: None (occurrence: None)
  Receive Date: 20100621
  Receipt Date: 20100621
  Transmission Date: 20101027
  Serious: Yes (Other)
  Sender: FDA-Public Use
  Company Number: None

PATIENT
  Age: 47 Year
  Sex: Female
  Weight: 92.3 kg

DRUGS (3)
  1. VALPROIC ACID [Suspect]
     Indication: EPILEPSY
     Dosage: 250MG THREE TABLETS BID PO
     Route: 048
     Dates: start: 20091101
  2. VALPROIC ACID [Suspect]
     Indication: HYPOTHYROIDISM
     Dosage: 250MG THREE TABLETS BID PO
     Route: 048
     Dates: start: 20091101
  3. KEPPRA [Concomitant]

REACTIONS (1)
  - GRAND MAL CONVULSION [None]
